FAERS Safety Report 25152569 (Version 3)
Quarter: 2025Q2

REPORT INFORMATION
  Report Type: Report from Study
  Country: US (occurrence: US)
  Receive Date: 20250402
  Receipt Date: 20250520
  Transmission Date: 20250716
  Serious: Yes (Life-Threatening)
  Sender: NOVARTIS
  Company Number: US-002147023-NVSC2025US054543

PATIENT
  Age: 43 Year
  Sex: Male

DRUGS (2)
  1. KESIMPTA [Suspect]
     Active Substance: OFATUMUMAB
     Indication: Multiple sclerosis
     Dosage: 20 MG, QW
     Route: 058
     Dates: start: 20250218
  2. KESIMPTA [Suspect]
     Active Substance: OFATUMUMAB
     Route: 065

REACTIONS (9)
  - Feeling abnormal [Recovered/Resolved]
  - Movement disorder [Recovered/Resolved]
  - Speech disorder [Recovered/Resolved]
  - Pain [Recovered/Resolved]
  - Nausea [Recovered/Resolved]
  - Fatigue [Recovered/Resolved]
  - Headache [Recovered/Resolved]
  - Asthenia [Recovered/Resolved]
  - Device malfunction [Unknown]

NARRATIVE: CASE EVENT DATE: 20250318
